FAERS Safety Report 12389185 (Version 1)
Quarter: 2016Q2

REPORT INFORMATION
  Report Type: Spontaneous
  Country: SE (occurrence: SE)
  Receive Date: 20160520
  Receipt Date: 20160520
  Transmission Date: 20160815
  Serious: Yes (Hospitalization)
  Sender: FDA-Public Use
  Company Number: SE-PFIZER INC-2016259623

PATIENT
  Age: 60 Year
  Sex: Female

DRUGS (7)
  1. ATORVASTATIN TEVA [Concomitant]
     Active Substance: ATORVASTATIN
  2. BUVENTOL EASYHALER [Concomitant]
     Active Substance: ALBUTEROL SULFATE
  3. SALAZOPYRIN EN [Suspect]
     Active Substance: SULFASALAZINE
     Indication: PSORIATIC ARTHROPATHY
     Dosage: 1 G, 2X/DAY
     Route: 048
     Dates: start: 20160314, end: 20160401
  4. NORMORIX MITE [Concomitant]
     Active Substance: AMILORIDE HYDROCHLORIDE\HYDROCHLOROTHIAZIDE
  5. NITROLINGUAL [Concomitant]
     Active Substance: NITROGLYCERIN
  6. LEVAXIN [Concomitant]
     Active Substance: LEVOTHYROXINE SODIUM
  7. PANODIL [Concomitant]
     Active Substance: ACETAMINOPHEN

REACTIONS (3)
  - Myalgia [Recovered/Resolved]
  - Diarrhoea [Recovered/Resolved]
  - Vomiting [Recovered/Resolved]

NARRATIVE: CASE EVENT DATE: 201603
